FAERS Safety Report 9275169 (Version 1)
Quarter: 2013Q2

REPORT INFORMATION
  Report Type: Spontaneous
  Country: IT (occurrence: IT)
  Receive Date: 20130507
  Receipt Date: 20130507
  Transmission Date: 20140414
  Serious: Yes (Hospitalization)
  Sender: FDA-Public Use
  Company Number: IT-TEVA-401855ISR

PATIENT
  Age: 68 Year
  Sex: Male
  Weight: 82 kg

DRUGS (2)
  1. CARBOPLATIN [Suspect]
     Indication: PLEURAL MESOTHELIOMA
     Dosage: 300 MG CYCLICAL
     Route: 042
     Dates: start: 20130125, end: 20130125
  2. ALIMTA [Suspect]
     Indication: PLEURAL MESOTHELIOMA
     Dosage: 800 MG CYCLICAL
     Route: 042
     Dates: start: 20130125, end: 20130125

REACTIONS (4)
  - Dry skin [Not Recovered/Not Resolved]
  - Hypothermia [Not Recovered/Not Resolved]
  - Hypotonia [Not Recovered/Not Resolved]
  - Gait disturbance [Not Recovered/Not Resolved]
